FAERS Safety Report 6573775-3 (Version None)
Quarter: 2010Q1

REPORT INFORMATION
  Report Type: 
  Country: None (occurrence: None)
  Receive Date: 20100204
  Receipt Date: 20100204
  Transmission Date: 20100710
  Serious: No
  Sender: FDA-Public Use
  Company Number: None

PATIENT
  Sex: Male

DRUGS (1)
  1. GENERIC COSOPT (DORZOLAMIDE - TIMOLOL) [Suspect]
     Indication: GLAUCOMA
     Dosage: ONE GTT BID EYE
     Dates: start: 20091201

REACTIONS (1)
  - EYE PRURITUS [None]
